FAERS Safety Report 6230024-3 (Version None)
Quarter: 2009Q2

REPORT INFORMATION
  Report Type: 
  Country: None (occurrence: None)
  Receive Date: 20090615
  Receipt Date: 20090601
  Transmission Date: 20091009
  Serious: Yes (Other)
  Sender: FDA-Public Use
  Company Number: TW-MYLANLABS-2009S1009715

PATIENT
  Age: 67 Year
  Sex: Female

DRUGS (7)
  1. CAPTOPRIL [Suspect]
     Indication: BLOOD PRESSURE INCREASED
  2. CAPTOPRIL [Suspect]
  3. CARBIDOPA AND LEVODOPA [Concomitant]
  4. PERGOLIDE [Concomitant]
  5. ENTACAPONE [Concomitant]
  6. SELEGILINE [Concomitant]
  7. AMANTADIN /00055901/ [Concomitant]

REACTIONS (1)
  - PARKINSON'S DISEASE [None]
